FAERS Safety Report 4765142-X (Version None)
Quarter: 2005Q3

REPORT INFORMATION
  Report Type: 
  Country: None (occurrence: None)
  Receive Date: 20050909
  Receipt Date: 20050901
  Transmission Date: 20060218
  Serious: Yes (Hospitalization, Other)
  Sender: FDA-Public Use
  Company Number: FR-ABBOTT-05P-056-0310146-00

PATIENT
  Sex: Male
  Weight: 1.56 kg

DRUGS (6)
  1. KALETRA [Suspect]
     Indication: DRUG EXPOSURE DURING PREGNANCY
  2. LAMIVUDINE + ZIDOVUDINE [Suspect]
     Indication: DRUG EXPOSURE DURING PREGNANCY
  3. TRIZIVIR [Suspect]
     Indication: DRUG EXPOSURE DURING PREGNANCY
  4. ZIDOVUDINE [Suspect]
     Indication: DRUG EXPOSURE DURING PREGNANCY
     Dosage: 3 MG/KG
     Route: 042
     Dates: start: 20050722, end: 20050722
  5. AMOXICILLIN [Suspect]
     Indication: DRUG EXPOSURE DURING PREGNANCY
  6. BETHAMETASONE [Concomitant]
     Indication: DRUG USE FOR UNKNOWN INDICATION
     Dosage: IN UTERO DELIVERY
     Dates: start: 20050722, end: 20050722

REACTIONS (12)
  - ABDOMINAL DISTENSION [None]
  - ANAEMIA [None]
  - COLITIS ULCERATIVE [None]
  - FOETAL GROWTH RETARDATION [None]
  - INTESTINAL FUNCTIONAL DISORDER [None]
  - LARGE INTESTINE PERFORATION [None]
  - NECROTISING COLITIS [None]
  - OLIGOHYDRAMNIOS [None]
  - PERITONITIS [None]
  - PREMATURE LABOUR [None]
  - PREMATURE RUPTURE OF MEMBRANES [None]
  - RESPIRATORY DISTRESS [None]
